FAERS Safety Report 7633269-0 (Version None)
Quarter: 2011Q3

REPORT INFORMATION
  Report Type: 
  Country: None (occurrence: None)
  Receive Date: 20110725
  Receipt Date: 20110718
  Transmission Date: 20111222
  Serious: Yes (Death, Other)
  Sender: FDA-Public Use
  Company Number: US-ROCHE-791631

PATIENT
  Age: 60 Year
  Sex: Female

DRUGS (3)
  1. OSELTAMIVIR [Suspect]
     Route: 048
  2. RIMANTADINE HYDROCHLORIDE [Suspect]
     Route: 048
  3. OSELTAMIVIR [Suspect]
     Route: 048

REACTIONS (3)
  - DRUG RESISTANCE [None]
  - HAEMORRHAGIC STROKE [None]
  - DRUG INEFFECTIVE [None]
